FAERS Safety Report 9236642 (Version 2)
Quarter: 2013Q3

REPORT INFORMATION
  Report Type: Report from Study
  Country: DE (occurrence: DE)
  Receive Date: 20130417
  Receipt Date: 20130717
  Transmission Date: 20140515
  Serious: Yes (Hospitalization)
  Sender: FDA-Public Use
  Company Number: DE-ROCHE-1213887

PATIENT
  Age: 47 Year
  Sex: Female

DRUGS (6)
  1. RIBAVIRIN [Suspect]
     Indication: HEPATITIS C
     Route: 048
     Dates: start: 20120424, end: 20120820
  2. PEG-INTERFERON ALFA 2A [Suspect]
     Indication: HEPATITIS C
     Route: 058
     Dates: start: 20120424, end: 20120814
  3. DACLATASVIR [Suspect]
     Indication: HEPATITIS C
     Route: 048
     Dates: start: 20120424, end: 20120820
  4. CITALOPRAM [Concomitant]
     Route: 065
     Dates: start: 20120813
  5. EMTRICITABINE [Concomitant]
     Indication: HIV INFECTION
     Route: 065
     Dates: start: 20130220
  6. TENOFOVIR [Concomitant]
     Indication: HIV INFECTION
     Route: 065
     Dates: start: 20130220

REACTIONS (1)
  - Ataxia [Not Recovered/Not Resolved]
